FAERS Safety Report 23333361 (Version 1)
Quarter: 2023Q4

REPORT INFORMATION
  Report Type: Spontaneous
  Country: US (occurrence: US)
  Receive Date: 20231222
  Receipt Date: 20231222
  Transmission Date: 20240109
  Serious: No
  Sender: FDA-Public Use
  Company Number: US-CTI BIOPHARMA-2023US04166

PATIENT

DRUGS (15)
  1. VONJO [Suspect]
     Active Substance: PACRITINIB
     Indication: Myelofibrosis
     Dosage: 200 MG, BID
     Route: 048
     Dates: start: 20221122
  2. AMLODIPINE [Concomitant]
     Active Substance: AMLODIPINE BESYLATE
  3. ARANESP [Concomitant]
     Active Substance: DARBEPOETIN ALFA
  4. BUPROPION [Concomitant]
     Active Substance: BUPROPION
  5. BUSPIRONE [Concomitant]
     Active Substance: BUSPIRONE HYDROCHLORIDE
  6. CITALOPRAM [Concomitant]
     Active Substance: CITALOPRAM HYDROBROMIDE
  7. IRON [Concomitant]
     Active Substance: IRON
  8. LISINOPRIL [Concomitant]
     Active Substance: LISINOPRIL
  9. LUTEIN ZEAXANTHIN [Concomitant]
  10. METOPROLOL [Concomitant]
     Active Substance: METOPROLOL
  11. OMEPRAZOLE [Concomitant]
     Active Substance: OMEPRAZOLE
  12. OXYCODONE [Concomitant]
     Active Substance: OXYCODONE
  13. PREDNISONE [Concomitant]
     Active Substance: PREDNISONE
  14. ASPIRIN [Concomitant]
     Active Substance: ASPIRIN
  15. ZOFRAN [Concomitant]
     Active Substance: ONDANSETRON HYDROCHLORIDE

REACTIONS (1)
  - Anaemia [Unknown]
